FAERS Safety Report 18129453 (Version 1)
Quarter: 2020Q3

REPORT INFORMATION
  Report Type: Spontaneous
  Country: US (occurrence: US)
  Receive Date: 20200810
  Receipt Date: 20200810
  Transmission Date: 20201103
  Serious: Yes (Other)
  Sender: FDA-Public Use
  Company Number: US-GLAXOSMITHKLINE-US2020153385

PATIENT
  Age: 63 Year
  Sex: Male

DRUGS (1)
  1. COREG CR [Suspect]
     Active Substance: CARVEDILOL PHOSPHATE
     Indication: CARDIAC DISORDER
     Dosage: 40 MG, 1D
     Route: 048
     Dates: start: 2010

REACTIONS (3)
  - Productive cough [Unknown]
  - Myocardial infarction [Unknown]
  - Vascular graft [Unknown]

NARRATIVE: CASE EVENT DATE: 202007
